FAERS Safety Report 7241446-6 (Version None)
Quarter: 2011Q1

REPORT INFORMATION
  Report Type: 
  Country: None (occurrence: None)
  Receive Date: 20110124
  Receipt Date: 20110114
  Transmission Date: 20110831
  Serious: Yes (Other)
  Sender: FDA-Public Use
  Company Number: US-ROCHE-754461

PATIENT
  Age: 21 Year
  Sex: Female

DRUGS (6)
  1. FOSAMAX [Concomitant]
  2. TYLENOL-500 [Concomitant]
  3. BONIVA [Suspect]
     Indication: OSTEOPOROSIS
     Dosage: ONE DOSE
     Route: 048
     Dates: start: 20090101
  4. CALCIUM [Concomitant]
  5. ATENOLOL [Concomitant]
  6. CATAPRES [Concomitant]

REACTIONS (2)
  - DYSPHONIA [None]
  - RHEUMATOID ARTHRITIS [None]
